FAERS Safety Report 15345481 (Version 1)
Quarter: 2018Q3

REPORT INFORMATION
  Report Type: Spontaneous
  Country: US (occurrence: US)
  Receive Date: 20180903
  Receipt Date: 20180903
  Transmission Date: 20181010
  Serious: Yes (Other)
  Sender: FDA-Public Use
  Company Number: US-AMGEN-USASP2018120232

PATIENT
  Age: 72 Year
  Sex: Female

DRUGS (3)
  1. ENBREL [Suspect]
     Active Substance: ETANERCEPT
     Dosage: UNK
     Route: 065
  2. ENBREL [Suspect]
     Active Substance: ETANERCEPT
     Indication: PSORIASIS
     Dosage: UNK
     Route: 065
     Dates: start: 2013, end: 2013
  3. ENBREL [Suspect]
     Active Substance: ETANERCEPT
     Indication: PSORIATIC ARTHROPATHY
     Dosage: UNK
     Route: 065
     Dates: start: 2003, end: 2013

REACTIONS (7)
  - Post procedural infection [Unknown]
  - Fall [Unknown]
  - Venous occlusion [Unknown]
  - Clostridium difficile infection [Unknown]
  - Mammoplasty [Unknown]
  - Upper limb fracture [Unknown]
  - Chondropathy [Not Recovered/Not Resolved]

NARRATIVE: CASE EVENT DATE: 2011
